FAERS Safety Report 4929063-1 (Version None)
Quarter: 2006Q1

REPORT INFORMATION
  Report Type: 
  Country: None (occurrence: None)
  Receive Date: 20060301
  Receipt Date: 20050112
  Transmission Date: 20060701
  Serious: Yes (Hospitalization)
  Sender: FDA-Public Use
  Company Number: US-MERCK-0501USA02219

PATIENT
  Age: 73 Year
  Sex: Female
  Weight: 73 kg

DRUGS (2)
  1. VIOXX [Suspect]
     Indication: ARTHRITIS
     Route: 048
     Dates: start: 19990901, end: 20040901
  2. VIOXX [Suspect]
     Indication: PERONEAL NERVE PALSY
     Route: 048
     Dates: start: 19990901, end: 20040901

REACTIONS (8)
  - ABDOMINAL PAIN UPPER [None]
  - BLOOD DISORDER [None]
  - CHEST PAIN [None]
  - GASTROINTESTINAL DISORDER [None]
  - NEPHROLITHIASIS [None]
  - PLATELET COUNT DECREASED [None]
  - PULMONARY EMBOLISM [None]
  - PULMONARY THROMBOSIS [None]
